FAERS Safety Report 8362443 (Version 2)
Quarter: 2015Q1

REPORT INFORMATION
  Report Type: Report from Study
  Country: US (occurrence: US)
  Receive Date: 20120130
  Receipt Date: 20150225
  Transmission Date: 20150721
  Serious: Yes (Death)
  Sender: FDA-Public Use
  Company Number: US-ROCHE-1034545

PATIENT
  Sex: Female

DRUGS (13)
  1. COMPAZINE [Concomitant]
     Active Substance: PROCHLORPERAZINE MALEATE
     Dosage: PM
     Route: 065
  2. LISINOPRIL. [Concomitant]
     Active Substance: LISINOPRIL
     Route: 048
  3. ZOFRAN [Concomitant]
     Active Substance: ONDANSETRON HYDROCHLORIDE
     Dosage: PM
     Route: 048
  4. NITROFURANTOIN. [Concomitant]
     Active Substance: NITROFURANTOIN
  5. ETOPOSIDE. [Concomitant]
     Active Substance: ETOPOSIDE
  6. ERLOTINIB [Suspect]
     Active Substance: ERLOTINIB
     Indication: BRAIN NEOPLASM MALIGNANT
     Route: 065
  7. ADVIL [Concomitant]
     Active Substance: IBUPROFEN
  8. ATIVAN ORAL [Concomitant]
     Dosage: PM
     Route: 048
  9. LEXAPRO [Concomitant]
     Active Substance: ESCITALOPRAM OXALATE
     Dosage: AT BEDTIME
     Route: 048
  10. AVASTIN [Suspect]
     Active Substance: BEVACIZUMAB
     Indication: BRAIN NEOPLASM MALIGNANT
     Route: 042
  11. KEPPRA [Concomitant]
     Active Substance: LEVETIRACETAM
     Route: 065
  12. GRANISETRON [Concomitant]
     Active Substance: GRANISETRON
     Route: 065
  13. LOMUSTINE. [Concomitant]
     Active Substance: LOMUSTINE
     Route: 048

REACTIONS (2)
  - Off label use [Unknown]
  - Death [Fatal]
